FAERS Safety Report 7743776-8 (Version None)
Quarter: 2011Q3

REPORT INFORMATION
  Report Type: 
  Country: None (occurrence: None)
  Receive Date: 20110912
  Receipt Date: 20110902
  Transmission Date: 20111222
  Serious: Yes (Hospitalization)
  Sender: FDA-Public Use
  Company Number: US-GLAXOSMITHKLINE-A0786508A

PATIENT
  Sex: Female

DRUGS (16)
  1. AZOPT [Concomitant]
  2. FLOVENT [Suspect]
     Indication: PRODUCT USED FOR UNKNOWN INDICATION
     Dosage: 110MCG UNKNOWN
     Route: 055
  3. VENTOLIN HFA [Suspect]
     Indication: PRODUCT USED FOR UNKNOWN INDICATION
     Route: 065
  4. PAXIL [Suspect]
     Indication: PRODUCT USED FOR UNKNOWN INDICATION
     Route: 048
  5. PAXIL CR [Suspect]
     Indication: PRODUCT USED FOR UNKNOWN INDICATION
     Dosage: 37.5MG UNKNOWN
     Route: 048
  6. ADVAIR DISKUS 100/50 [Suspect]
     Indication: ASTHMA
     Dosage: 1PUFF TWICE PER DAY
     Route: 055
     Dates: start: 20060101, end: 20060101
  7. ALDACTAZIDE [Concomitant]
  8. SYNTHROID [Concomitant]
  9. SEREVENT [Suspect]
     Indication: ASTHMA
     Route: 055
  10. ALPRAZOLAM [Concomitant]
  11. ADVIL LIQUI-GELS [Concomitant]
  12. COMBIGAN [Concomitant]
  13. IMITREX [Suspect]
     Indication: MIGRAINE
     Dosage: 100MG AS REQUIRED
     Route: 048
     Dates: start: 19950101
  14. XANAX [Concomitant]
  15. ROCALTROL [Concomitant]
  16. COMBIVENT [Concomitant]

REACTIONS (6)
  - STAPHYLOCOCCAL INFECTION [None]
  - GLAUCOMA [None]
  - DRUG INEFFECTIVE [None]
  - DIPLOPIA [None]
  - BLINDNESS UNILATERAL [None]
  - CATARACT [None]
